FAERS Safety Report 19716356 (Version 2)
Quarter: 2021Q3

REPORT INFORMATION
  Report Type: Report from Study
  Country: DE (occurrence: DE)
  Receive Date: 20210818
  Receipt Date: 20210824
  Transmission Date: 20211014
  Serious: Yes (Hospitalization)
  Sender: FDA-Public Use
  Company Number: DE-MYLANLABS-2021M1051725

PATIENT
  Age: 59 Year
  Sex: Female

DRUGS (3)
  1. IBUPROFEN. [Suspect]
     Active Substance: IBUPROFEN
     Indication: INFLUENZA LIKE ILLNESS
     Dosage: UNK UNK, QW
     Route: 048
     Dates: start: 201209, end: 2020
  2. AVONEX [Suspect]
     Active Substance: INTERFERON BETA-1A
     Indication: MULTIPLE SCLEROSIS
     Dosage: 30 MICROGRAM, QW
     Route: 030
     Dates: start: 20120901
  3. AVONEX [Suspect]
     Active Substance: INTERFERON BETA-1A
     Dosage: UNK
     Route: 030
     Dates: start: 20120901

REACTIONS (2)
  - Gastrointestinal inflammation [Not Recovered/Not Resolved]
  - Crohn^s disease [Not Recovered/Not Resolved]
